FAERS Safety Report 9525226 (Version 1)
Quarter: 2013Q1

REPORT INFORMATION
  Report Type: Spontaneous
  Country: US (occurrence: None)
  Receive Date: 20130305
  Receipt Date: 20130305
  Transmission Date: 20140127
  Serious: Yes (Hospitalization)
  Sender: FDA-Public Use
  Company Number: 163-21880-12030066

PATIENT
  Age: 84 Year
  Sex: Female

DRUGS (6)
  1. REVLIMID [Suspect]
     Indication: PLASMA CELL MYELOMA
     Route: 048
     Dates: start: 201201
  2. WARFARIN [Concomitant]
  3. BLOOD PRESSURE MEDICATIONS (ANTIHYPERTENSIVES) [Concomitant]
  4. GOUT MEDICATIONS (ANTIGOUT PREPARATIONS) [Concomitant]
  5. STEROIDS (CORTICOSTEROIDS) [Concomitant]
  6. VITAMINS [Concomitant]

REACTIONS (3)
  - Platelet count decreased [None]
  - Anaemia [None]
  - Full blood count decreased [None]
